FAERS Safety Report 6582897-2 (Version None)
Quarter: 2010Q1

REPORT INFORMATION
  Report Type: 
  Country: None (occurrence: None)
  Receive Date: 20100216
  Receipt Date: 20100202
  Transmission Date: 20100710
  Serious: Yes (Life-Threatening)
  Sender: FDA-Public Use
  Company Number: US-SANOFI-AVENTIS-200912390EU

PATIENT
  Age: 82 Year
  Sex: Female
  Weight: 49 kg

DRUGS (9)
  1. ENOXAPARIN SODIUM [Suspect]
     Dosage: DOSE UNIT: 40 MG
     Route: 058
     Dates: start: 20090501
  2. POTASSIUM CHLORIDE [Concomitant]
     Dates: start: 20090430
  3. AMITRIPTYLINE HCL [Concomitant]
     Dates: start: 20090430
  4. ZESTRIL [Concomitant]
     Dates: start: 20090430
  5. TOPROL-XL [Concomitant]
     Dates: start: 20090430
  6. ZOFRAN [Concomitant]
     Dates: start: 20090429
  7. TYLENOL (CAPLET) [Concomitant]
     Dates: start: 20090501
  8. PERCOCET [Concomitant]
     Dates: start: 20090501
  9. PANTOPRAZOLE SODIUM [Concomitant]
     Dates: start: 20090501

REACTIONS (3)
  - ACUTE RESPIRATORY FAILURE [None]
  - HEPATIC FAILURE [None]
  - ISCHAEMIC STROKE [None]
